FAERS Safety Report 5615262-2 (Version None)
Quarter: 2008Q1

REPORT INFORMATION
  Report Type: 
  Country: None (occurrence: None)
  Receive Date: 20080201
  Receipt Date: 20080124
  Transmission Date: 20080703
  Serious: Yes (Hospitalization)
  Sender: FDA-Public Use
  Company Number: 2008-00203

PATIENT
  Age: 69 Year
  Sex: Male
  Weight: 93.1 kg

DRUGS (34)
  1. VELCADE [Suspect]
     Indication: MULTIPLE MYELOMA
     Dosage: 1.00 MG/M2
     Dates: start: 20060510, end: 20071214
  2. DEXAMETHASONE TAB [Suspect]
     Indication: MULTIPLE MYELOMA
     Dosage: 40.00 MG;12.00 MG
     Dates: end: 20071214
  3. DEXAMETHASONE TAB [Suspect]
     Indication: MULTIPLE MYELOMA
     Dosage: 40.00 MG;12.00 MG
     Dates: start: 20060513
  4. THALIDOMIDE [Suspect]
     Indication: MULTIPLE MYELOMA
     Dosage: 200.00MG; 50.00MG
     Dates: end: 20080102
  5. THALIDOMIDE [Suspect]
     Indication: MULTIPLE MYELOMA
     Dosage: 200.00MG; 50.00MG
     Dates: start: 20060513
  6. CISPLATIN [Suspect]
     Indication: MULTIPLE MYELOMA
     Dosage: 10.00 MG/M2; 7.50 MG/M2
     Dates: end: 20070324
  7. CISPLATIN [Suspect]
     Indication: MULTIPLE MYELOMA
     Dosage: 10.00 MG/M2; 7.50 MG/M2
     Dates: start: 20060513
  8. DOXORUBICIN HCL [Suspect]
     Indication: MULTIPLE MYELOMA
     Dosage: 10.00 MG/M2; 7.50 MG/M2
     Dates: end: 20070324
  9. DOXORUBICIN HCL [Suspect]
     Indication: MULTIPLE MYELOMA
     Dosage: 10.00 MG/M2; 7.50 MG/M2
     Dates: start: 20060513
  10. CYCLOPHOSPHAMIDE [Suspect]
     Indication: MULTIPLE MYELOMA
     Dosage: 400.00 MG/M2; 300.00 MG/M2
     Dates: end: 20070324
  11. CYCLOPHOSPHAMIDE [Suspect]
     Indication: MULTIPLE MYELOMA
     Dosage: 400.00 MG/M2; 300.00 MG/M2
     Dates: start: 20060513
  12. ETOPOSIDE [Suspect]
     Indication: MULTIPLE MYELOMA
     Dosage: 40.00 MG/M2; 30.00 MG/M2
     Dates: end: 20070324
  13. ETOPOSIDE [Suspect]
     Indication: MULTIPLE MYELOMA
     Dosage: 40.00 MG/M2; 30.00 MG/M2
     Dates: start: 20060513
  14. MELPHALAN (MELPHALAN) VIAL [Suspect]
     Indication: MULTIPLE MYELOMA
     Dosage: 200.0 MG/M2
     Dates: start: 20060822, end: 20061028
  15. FLUNISOLIDE (FLUNISOLIDE) [Concomitant]
  16. ALLEGRA (FEXODENADINE HYDROCHLORIDE) [Concomitant]
  17. ACYCLOVIR [Concomitant]
  18. DOCUSATE SODIUM (DOCUSATE SODIUM) [Concomitant]
  19. OXYCODONE HCL [Concomitant]
  20. LEXAPRO [Concomitant]
  21. MEN'S ONE DAILY (ERGOCALCIFEROL, VITAMIN B NOS, TOCOPHEROL, FOLIC ACID [Concomitant]
  22. RANITIDINE HYDROCHLORIDE [Concomitant]
  23. FOLIC ACID [Concomitant]
  24. OXYCONTIN (OXYCONTIN HYDROCHLORIDE) [Concomitant]
  25. TESTOSTERONE ENANTHATE [Concomitant]
  26. LEVAQUIN [Concomitant]
  27. DIPHENHYDRAMINE HYDROHCLORIDE (DIPHENHYDRAMINE HYDROCHLORIDE) [Concomitant]
  28. ACTIQ [Concomitant]
  29. FLUCONAZOLE [Concomitant]
  30. NEUPOGEN [Concomitant]
  31. SODIUM CHLORIDE 0.9% [Concomitant]
  32. OCTREOTIDE ACETATE (OCTREOTIDE ACETATE) [Concomitant]
  33. LOMOTIL (ATROPINE SULFATE, DIPHENOXYLATE HYROCHLORIDE) [Concomitant]
  34. ZOFRAN [Concomitant]

REACTIONS (2)
  - COLITIS [None]
  - NAUSEA [None]
